FAERS Safety Report 4787589-8 (Version None)
Quarter: 2005Q3

REPORT INFORMATION
  Report Type: 
  Country: None (occurrence: None)
  Receive Date: 20050914
  Receipt Date: 20050201
  Transmission Date: 20060218
  Serious: Yes (Other)
  Sender: FDA-Public Use
  Company Number: 163-20785-05020037

PATIENT
  Age: 78 Year
  Sex: Female
  Weight: 69.4003 kg

DRUGS (5)
  1. THALOMID [Suspect]
     Indication: MULTIPLE MYELOMA
     Dosage: 100-200 MG, DAILY, ORAL
     Route: 048
     Dates: start: 20041014, end: 20041123
  2. CLONIDINE [Concomitant]
  3. LASIX [Concomitant]
  4. PROCRIT [Concomitant]
  5. BENICAR [Concomitant]

REACTIONS (14)
  - ARTHRALGIA [None]
  - ASTHENIA [None]
  - DYSPEPSIA [None]
  - FALL [None]
  - FATIGUE [None]
  - HAEMATOCRIT DECREASED [None]
  - HAEMOGLOBIN DECREASED [None]
  - HEADACHE [None]
  - MYALGIA [None]
  - NECK PAIN [None]
  - OEDEMA [None]
  - PAIN [None]
  - STOMACH DISCOMFORT [None]
  - SYNCOPE [None]
